FAERS Safety Report 16453153 (Version 1)
Quarter: 2019Q2

REPORT INFORMATION
  Report Type: Spontaneous
  Country: US (occurrence: US)
  Receive Date: 20190619
  Receipt Date: 20190619
  Transmission Date: 20190711
  Serious: No
  Sender: FDA-Public Use
  Company Number: US-SA-2019SA161778

PATIENT
  Age: 68 Year
  Sex: Female

DRUGS (2)
  1. BYETTA [Concomitant]
     Active Substance: EXENATIDE
     Dosage: UNK
     Route: 065
  2. LANTUS SOLOSTAR [Suspect]
     Active Substance: INSULIN GLARGINE
     Indication: DIABETES MELLITUS
     Dosage: 28-30 UNITS DAILY
     Route: 065

REACTIONS (6)
  - Thalassaemia minor [Unknown]
  - Inappropriate schedule of product administration [Unknown]
  - Insomnia [Unknown]
  - Muscle spasms [Unknown]
  - Anaemia [Unknown]
  - Drug ineffective [Unknown]
